FAERS Safety Report 20554616 (Version 2)
Quarter: 2022Q1

REPORT INFORMATION
  Report Type: Spontaneous
  Country: IT (occurrence: IT)
  Receive Date: 20220304
  Receipt Date: 20220309
  Transmission Date: 20220424
  Serious: Yes (Other)
  Sender: FDA-Public Use
  Company Number: IT-MENARINI-IT-MEN-081566

PATIENT
  Age: 79 Year
  Sex: Female

DRUGS (3)
  1. RANEXA [Suspect]
     Active Substance: RANOLAZINE
     Indication: Stress cardiomyopathy
     Dosage: 375 MG, BID
     Route: 065
     Dates: start: 202108, end: 202202
  2. ASPIRIN [Concomitant]
     Active Substance: ASPIRIN
     Dosage: UNK
  3. BISOPROLOL [Concomitant]
     Active Substance: BISOPROLOL
     Dosage: UNK

REACTIONS (2)
  - Retinal oedema [Recovered/Resolved]
  - Off label use [Recovered/Resolved]

NARRATIVE: CASE EVENT DATE: 20210801
